FAERS Safety Report 22126762 (Version 4)
Quarter: 2023Q4

REPORT INFORMATION
  Report Type: Report from Study
  Country: CA (occurrence: CA)
  Receive Date: 20230322
  Receipt Date: 20231204
  Transmission Date: 20240109
  Serious: Yes (Life-Threatening, Hospitalization, Other)
  Sender: FDA-Public Use
  Company Number: CA-PFIZER INC-202300122012

PATIENT
  Age: 60 Year
  Sex: Female

DRUGS (10)
  1. METHOTREXATE SODIUM [Suspect]
     Active Substance: METHOTREXATE SODIUM
     Dosage: UNK
  2. COSENTYX [Suspect]
     Active Substance: SECUKINUMAB
     Indication: Psoriasis
     Dosage: 300 MG, MONTHLY
     Route: 058
  3. COSENTYX [Suspect]
     Active Substance: SECUKINUMAB
     Dosage: 300 MG
     Route: 058
  4. COSENTYX [Suspect]
     Active Substance: SECUKINUMAB
     Dosage: UNK
     Route: 065
  5. COSENTYX [Suspect]
     Active Substance: SECUKINUMAB
     Dosage: 300 MG, MONTHLY
     Route: 058
  6. COSENTYX [Suspect]
     Active Substance: SECUKINUMAB
     Dosage: 300 MG
     Route: 058
  7. COSENTYX [Suspect]
     Active Substance: SECUKINUMAB
     Indication: Psoriasis
     Dosage: 300 MG, MONTHLY
     Route: 058
  8. ACITRETIN [Concomitant]
     Active Substance: ACITRETIN
     Dosage: UNK
  9. NEORAL [Concomitant]
     Active Substance: CYCLOSPORINE
     Dosage: UNK
  10. SORIATANE [Concomitant]
     Active Substance: ACITRETIN
     Dosage: UNK

REACTIONS (16)
  - Blood cholesterol abnormal [Unknown]
  - Drug ineffective [Unknown]
  - Fatigue [Unknown]
  - Intellectual disability [Unknown]
  - Malaise [Unknown]
  - Myocardial infarction [Unknown]
  - Nephrolithiasis [Unknown]
  - Off label use [Unknown]
  - Pain [Unknown]
  - Pain of skin [Unknown]
  - Pruritus [Unknown]
  - Pulmonary mass [Unknown]
  - Renal failure [Unknown]
  - Ulcer [Unknown]
  - Urinary tract infection [Unknown]
  - Renal impairment [Unknown]
